FAERS Safety Report 7357823-9 (Version None)
Quarter: 2011Q1

REPORT INFORMATION
  Report Type: 
  Country: None (occurrence: None)
  Receive Date: 20110317
  Receipt Date: 20110307
  Transmission Date: 20110831
  Serious: Yes (Death, Other)
  Sender: FDA-Public Use
  Company Number: ES-AMGEN-ESPSP2011012854

PATIENT
  Age: 54 Year
  Sex: Female

DRUGS (3)
  1. SINTROM [Concomitant]
  2. PARICALCITOL [Concomitant]
  3. CINACALCET HYDROCHLORIDE [Suspect]
     Indication: HYPERPARATHYROIDISM
     Dosage: UNK
     Dates: start: 20050101, end: 20080101

REACTIONS (3)
  - MITRAL VALVE REPLACEMENT [None]
  - HYPOCALCAEMIA [None]
  - CALCIPHYLAXIS [None]
